FAERS Safety Report 11446001 (Version 1)
Quarter: 2015Q3

REPORT INFORMATION
  Report Type: Spontaneous
  Country: US (occurrence: US)
  Receive Date: 20150902
  Receipt Date: 20150902
  Transmission Date: 20151125
  Serious: No
  Sender: FDA-Public Use
  Company Number: ALCN2015US005182

PATIENT
  Age: 64 Year
  Sex: Female

DRUGS (3)
  1. CIPRO HC [Suspect]
     Active Substance: CIPROFLOXACIN HYDROCHLORIDE\HYDROCORTISONE
     Dosage: 3 GTT, BID
     Route: 001
     Dates: start: 20150723, end: 20150729
  2. CIPRO HC [Suspect]
     Active Substance: CIPROFLOXACIN HYDROCHLORIDE\HYDROCORTISONE
     Indication: EAR INFECTION
     Dosage: 2 GTT, BID
     Route: 001
     Dates: start: 20150712, end: 20150722
  3. CIPRO HC [Suspect]
     Active Substance: CIPROFLOXACIN HYDROCHLORIDE\HYDROCORTISONE
     Dosage: 2 GTT, QD
     Route: 001

REACTIONS (2)
  - Medication residue present [Not Recovered/Not Resolved]
  - Wrong technique in product usage process [Not Recovered/Not Resolved]
